FAERS Safety Report 5483474-7 (Version None)
Quarter: 2007Q4

REPORT INFORMATION
  Report Type: 
  Country: None (occurrence: None)
  Receive Date: 20071012
  Receipt Date: 20071008
  Transmission Date: 20080405
  Serious: Yes (Hospitalization)
  Sender: FDA-Public Use
  Company Number: US-BRISTOL-MYERS SQUIBB COMPANY-13933783

PATIENT
  Age: 60 Year
  Sex: Female

DRUGS (4)
  1. CISPLATIN [Suspect]
     Indication: OESOPHAGEAL SQUAMOUS CELL CARCINOMA
     Dosage: CISPLATIN ADMINISTERED 75 MG INTRAVENOUSLY ON 11-JAN-2007
     Route: 042
     Dates: start: 20061227
  2. IRINOTECAN HCL [Suspect]
     Indication: OESOPHAGEAL SQUAMOUS CELL CARCINOMA
     Route: 042
     Dates: start: 20070104
  3. FOLINIC ACID [Suspect]
     Indication: OESOPHAGEAL SQUAMOUS CELL CARCINOMA
     Dosage: RECEIVED 750 MG INTRAVENOUSLY ON 11-JAN-07.
     Route: 042
     Dates: start: 20070104
  4. FLUOROURACIL [Suspect]
     Indication: OESOPHAGEAL SQUAMOUS CELL CARCINOMA
     Dosage: ALSO ON 05-JAN-2007 (24 HOUR INFUSION),2700 MG ON 11-JAN-07 AND 12-JAN -07.
     Route: 042
     Dates: start: 20070104

REACTIONS (4)
  - DYSPHAGIA [None]
  - FISTULA [None]
  - VOMITING [None]
  - WEIGHT DECREASED [None]
